FAERS Safety Report 6402743-7 (Version None)
Quarter: 2009Q4

REPORT INFORMATION
  Report Type: 
  Country: None (occurrence: None)
  Receive Date: 20091013
  Receipt Date: 20090928
  Transmission Date: 20100525
  Serious: Yes (Death, Hospitalization)
  Sender: FDA-Public Use
  Company Number: CLOF-1000716

PATIENT
  Age: 69 Year
  Sex: Male

DRUGS (1)
  1. CLOLAR [Suspect]
     Indication: T-CELL LYMPHOMA
     Dosage: INTRAVENOUS
     Route: 042
     Dates: start: 20090101, end: 20090826

REACTIONS (3)
  - CARDIAC FAILURE CONGESTIVE [None]
  - INFECTION [None]
  - RENAL FAILURE [None]
